FAERS Safety Report 4347618-2 (Version None)
Quarter: 2004Q1

REPORT INFORMATION
  Report Type: 
  Country: None (occurrence: None)
  Receive Date: 20040325
  Receipt Date: 20040123
  Transmission Date: 20041129
  Serious: No
  Sender: FDA-Public Use
  Company Number: USA040157504

PATIENT
  Age: 78 Year
  Sex: Female

DRUGS (1)
  1. FORTEO [Suspect]
     Dates: end: 20040113

REACTIONS (2)
  - EPISTAXIS [None]
  - GASTROOESOPHAGEAL REFLUX DISEASE [None]
